FAERS Safety Report 9867982 (Version 1)
Quarter: 2014Q1

REPORT INFORMATION
  Report Type: Spontaneous
  Country: FR (occurrence: FR)
  Receive Date: 20140204
  Receipt Date: 20140204
  Transmission Date: 20141002
  Serious: Yes (Hospitalization, Other)
  Sender: FDA-Public Use
  Company Number: FR-AMGEN-FRASP2014007229

PATIENT
  Age: 78 Year
  Sex: Female

DRUGS (11)
  1. VECTIBIX [Suspect]
     Indication: PRODUCT USED FOR UNKNOWN INDICATION
     Dosage: UNK
     Route: 042
     Dates: start: 20130204
  2. IRINOTECAN [Concomitant]
     Dosage: UNK
     Dates: start: 20111012, end: 20130114
  3. IRINOTECAN [Concomitant]
     Dosage: UNK
     Dates: start: 20130204
  4. FLUOROURACIL [Concomitant]
     Dosage: UNK
     Dates: start: 20111012, end: 20130114
  5. FLUOROURACIL [Concomitant]
     Dosage: UNK
     Dates: start: 20130204
  6. AVASTIN                            /00848101/ [Concomitant]
     Dosage: UNK
     Dates: start: 20111012, end: 20130114
  7. ALTIZIDE W/SPIRONOLACTONE [Concomitant]
     Indication: HYPERTENSION
     Dosage: UNK
  8. ACEBUTOLOL [Concomitant]
     Indication: HYPERTENSION
     Dosage: UNK
  9. AZANTAC [Concomitant]
     Indication: HYPERTENSION
     Dosage: UNK
  10. TEMESTA                            /00273201/ [Concomitant]
     Indication: HYPERTENSION
     Dosage: UNK
  11. GAVISCON                           /01291401/ [Concomitant]
     Indication: HYPERTENSION
     Dosage: UNK

REACTIONS (2)
  - Mucocutaneous rash [Recovered/Resolved]
  - Rash [Recovered/Resolved]
